FAERS Safety Report 7731324-8 (Version None)
Quarter: 2011Q3

REPORT INFORMATION
  Report Type: 
  Country: None (occurrence: None)
  Receive Date: 20110906
  Receipt Date: 20110906
  Transmission Date: 20111222
  Serious: Yes (Other)
  Sender: FDA-Public Use
  Company Number: None

PATIENT
  Age: 36 Year
  Sex: Female
  Weight: 49.895 kg

DRUGS (1)
  1. METROGEL [Suspect]
     Indication: FUNGAL INFECTION
     Dosage: A THIN AMOUNT
     Route: 061
     Dates: start: 20110826, end: 20110903

REACTIONS (1)
  - UPPER RESPIRATORY TRACT INFECTION [None]
